FAERS Safety Report 5269479-X (Version None)
Quarter: 2007Q1

REPORT INFORMATION
  Report Type: 
  Country: None (occurrence: None)
  Receive Date: 20070314
  Receipt Date: 20070222
  Transmission Date: 20070707
  Serious: Yes (Death, Congenital Anomaly)
  Sender: FDA-Public Use
  Company Number: 2007308415

PATIENT
  Sex: Female

DRUGS (3)
  1. MINOXIDIL [Suspect]
     Indication: DRUG EXPOSURE DURING PREGNANCY
     Dosage: UNSPECIFIED DAILY FOR AT LEAST 1 YEAR, TRANSPLACENTAL
     Route: 064
  2. ACETAMINOPHEN [Suspect]
     Indication: DRUG EXPOSURE DURING PREGNANCY
     Dosage: 1 GRAM TOTAL, PLACENTAL
     Route: 064
  3. ETHANOL (ETHANOL) [Suspect]
     Indication: DRUG EXPOSURE DURING PREGNANCY
     Dosage: NEVER EXCEEDED 20 GM/DAY, PLACENTAL
     Route: 064

REACTIONS (17)
  - ABORTION INDUCED [None]
  - ARTERIOVENOUS MALFORMATION [None]
  - CARDIOMEGALY [None]
  - CEREBRAL HAEMORRHAGE [None]
  - CEREBRAL VENTRICLE DILATATION [None]
  - CONGENITAL AORTIC STENOSIS [None]
  - DEMYELINATION [None]
  - DRUG EXPOSURE DURING PREGNANCY [None]
  - EXTRADURAL HAEMATOMA [None]
  - FOETAL CARDIAC DISORDER [None]
  - FOETAL CEREBROVASCULAR DISORDER [None]
  - FOETAL DISORDER [None]
  - FOETAL MALFORMATION [None]
  - GASTROINTESTINAL DISORDER [None]
  - GLIOSIS [None]
  - NECROSIS [None]
  - PLACENTAL INSUFFICIENCY [None]
